FAERS Safety Report 8620012-1 (Version None)
Quarter: 2012Q3

REPORT INFORMATION
  Report Type: 
  Country: None (occurrence: None)
  Receive Date: 20120824
  Receipt Date: 20120816
  Transmission Date: 20120928
  Serious: Yes (Hospitalization, Other)
  Sender: FDA-Public Use
  Company Number: PHHY2012BR071555

PATIENT
  Sex: Female
  Weight: 100 kg

DRUGS (13)
  1. ACETAMINOPHEN [Concomitant]
     Indication: PAIN
     Dosage: SPORADIC USE
  2. FORMOTEROL FUMARATE [Suspect]
     Indication: ASTHMA
     Dosage: ONE INHALATION OF EACH TREATMENT IN THE MORNING AND IN THE AFTERNOON
  3. ACETAMINOPHEN W/ CODEINE [Concomitant]
     Indication: PAIN
     Dosage: SPORADIC USE
  4. TOPIRAMATE [Concomitant]
     Indication: HEADACHE
  5. LITHIUM CARBONATE [Concomitant]
     Indication: GENERAL PHYSICAL CONDITION ABNORMAL
     Dosage: 1 OR 2 TABLETS DAILY
     Route: 048
  6. NITRAZEPAM [Concomitant]
     Indication: SLEEP DISORDER
     Dosage: 2 TABLETS AT NIGHT
     Route: 048
  7. SCOPOLAMINE [Concomitant]
     Indication: PAIN
     Dosage: SPORADIC USE
  8. CARBAMAZEPINE [Concomitant]
     Indication: SLEEP DISORDER
     Dosage: 2 TABLETS IN THE MORNING AND 2 TABLETS AT NIGHT
     Route: 048
  9. ENALAPRIL MALEATE [Concomitant]
     Indication: HYPERTENSION
     Dosage: 2 TABLETS DAILY
     Route: 048
  10. HYDROCHLOROTHIAZIDE [Concomitant]
     Indication: HYPERTENSION
     Dosage: 25 MG, DAILY
     Route: 048
  11. FORMOTEROL FUMARATE [Suspect]
     Indication: BRONCHITIS
     Dosage: UNK UKN, UNK
     Dates: start: 20120815
  12. CLONAZEPAM [Concomitant]
     Indication: SLEEP DISORDER
     Dosage: 2 MG TABLET OR MORE DAILY
  13. TOPIRAMATE [Concomitant]
     Indication: SLEEP DISORDER
     Dosage: 1 TABLET IN THE MORNING AND 1 TABLET AT NIGHT
     Route: 048

REACTIONS (11)
  - ASTHMA [None]
  - BRONCHITIS [None]
  - OSTEOPOROSIS [None]
  - EXOSTOSIS [None]
  - WHEEZING [None]
  - GASTROOESOPHAGEAL REFLUX DISEASE [None]
  - CHONDROPATHY [None]
  - WEIGHT DECREASED [None]
  - INFLUENZA [None]
  - ARTHRALGIA [None]
  - COUGH [None]
